FAERS Safety Report 6149540-8 (Version None)
Quarter: 2009Q2

REPORT INFORMATION
  Report Type: 
  Country: None (occurrence: None)
  Receive Date: 20090409
  Receipt Date: 20090331
  Transmission Date: 20091009
  Serious: Yes (Disabling)
  Sender: FDA-Public Use
  Company Number: AT-JNJFOC-20090400589

PATIENT
  Sex: Male

DRUGS (1)
  1. REMICADE [Suspect]
     Indication: DRUG USE FOR UNKNOWN INDICATION
     Route: 042

REACTIONS (9)
  - ARRHYTHMIA [None]
  - DYSPNOEA [None]
  - ERYTHEMA [None]
  - HYPOAESTHESIA ORAL [None]
  - NEUROPATHY PERIPHERAL [None]
  - PRODUCTIVE COUGH [None]
  - SALIVARY HYPERSECRETION [None]
  - TEMPERATURE INTOLERANCE [None]
  - URINARY TRACT INFECTION [None]
